FAERS Safety Report 13901784 (Version 1)
Quarter: 2017Q3

REPORT INFORMATION
  Report Type: Spontaneous
  Country: US (occurrence: US)
  Receive Date: 20170824
  Receipt Date: 20170824
  Transmission Date: 20171127
  Serious: No
  Sender: FDA-Public Use
  Company Number: US-ROCHE-1103160

PATIENT

DRUGS (5)
  1. LAPATINIB [Concomitant]
     Active Substance: LAPATINIB
  2. TYKERB [Concomitant]
     Active Substance: LAPATINIB DITOSYLATE
  3. HERCEPTIN [Suspect]
     Active Substance: TRASTUZUMAB
     Indication: BREAST CANCER METASTATIC
     Route: 065
  4. AROMASIN [Concomitant]
     Active Substance: EXEMESTANE
  5. PERTUZUMAB. [Concomitant]
     Active Substance: PERTUZUMAB

REACTIONS (2)
  - Thrombocytopenia [Unknown]
  - Bone marrow failure [Unknown]
